FAERS Safety Report 21064033 (Version 3)
Quarter: 2022Q3

REPORT INFORMATION
  Report Type: Spontaneous
  Country: CO (occurrence: CO)
  Receive Date: 20220711
  Receipt Date: 20220812
  Transmission Date: 20221026
  Serious: Yes (Other)
  Sender: FDA-Public Use
  Company Number: CO-NOVARTISPH-NVSC2022CO156406

PATIENT
  Age: 6 Year
  Sex: Female
  Weight: 23 kg

DRUGS (5)
  1. RITALIN [Suspect]
     Active Substance: METHYLPHENIDATE HYDROCHLORIDE
     Indication: Psychomotor hyperactivity
     Dosage: 1 DOSAGE FORM, QD (STARTED APPROXIMATELY 2 MONTHS AGO)
     Route: 048
  2. RITALIN [Suspect]
     Active Substance: METHYLPHENIDATE HYDROCHLORIDE
     Dosage: 0.5 DOSAGE FORM, QD
     Route: 048
  3. RITALIN [Suspect]
     Active Substance: METHYLPHENIDATE HYDROCHLORIDE
     Dosage: 0.25 DOSAGE FORM, QD
     Route: 048
  4. RITALIN [Suspect]
     Active Substance: METHYLPHENIDATE HYDROCHLORIDE
     Dosage: 1 DOSAGE FORM, QD (1 OF 10 MG)
     Route: 048
     Dates: start: 20220516
  5. RITALIN [Suspect]
     Active Substance: METHYLPHENIDATE HYDROCHLORIDE
     Dosage: 1 DOSAGE FORM
     Route: 065
     Dates: end: 20220725

REACTIONS (6)
  - Choking [Unknown]
  - Crying [Recovered/Resolved]
  - Aggression [Recovered/Resolved]
  - Anxiety [Recovered/Resolved]
  - Cough [Unknown]
  - Off label use [Recovered/Resolved]

NARRATIVE: CASE EVENT DATE: 20220520
